FAERS Safety Report 7985200-6 (Version None)
Quarter: 2011Q4

REPORT INFORMATION
  Report Type: 
  Country: None (occurrence: None)
  Receive Date: 20111216
  Receipt Date: 20111207
  Transmission Date: 20120403
  Serious: Yes (Hospitalization, Other)
  Sender: FDA-Public Use
  Company Number: DK-JNJFOC-20111204089

PATIENT
  Sex: Male
  Weight: 81.01 kg

DRUGS (12)
  1. RITUXIMAB [Suspect]
     Indication: DIFFUSE LARGE B-CELL LYMPHOMA
     Dosage: CYCLE 1
     Route: 042
     Dates: start: 20110822, end: 20110822
  2. DOXORUBICIN HCL [Suspect]
     Dosage: CYCLE 2
     Route: 042
     Dates: start: 20110905, end: 20110905
  3. VINCRISTINE [Suspect]
     Indication: DIFFUSE LARGE B-CELL LYMPHOMA
     Dosage: CYCLE 1
     Route: 042
     Dates: start: 20110822, end: 20110822
  4. PREDNISONE TAB [Suspect]
     Indication: DIFFUSE LARGE B-CELL LYMPHOMA
     Dosage: CYCLE 2
     Route: 048
     Dates: start: 20110905, end: 20110905
  5. CYCLOPHOSPHAMIDE [Suspect]
     Dosage: CYCLE 2
     Route: 042
     Dates: start: 20110905, end: 20110905
  6. NEUPOGEN [Suspect]
     Dosage: CYCLE 1 OF INDUCTION PHASE
     Route: 042
     Dates: start: 20110823, end: 20110823
  7. RITUXIMAB [Suspect]
     Dosage: CYCLE 2
     Route: 042
     Dates: start: 20110905, end: 20110905
  8. PREDNISONE TAB [Suspect]
     Dosage: CYCLE 1
     Route: 048
     Dates: start: 20110822, end: 20110822
  9. CYCLOPHOSPHAMIDE [Suspect]
     Indication: DIFFUSE LARGE B-CELL LYMPHOMA
     Dosage: CYCLE 1
     Route: 042
     Dates: start: 20110822, end: 20110822
  10. VINCRISTINE [Suspect]
     Dosage: CYCLE 2
     Route: 042
     Dates: start: 20110905, end: 20110905
  11. DOXORUBICIN HCL [Suspect]
     Indication: DIFFUSE LARGE B-CELL LYMPHOMA
     Dosage: CYCLE 1
     Route: 042
     Dates: start: 20110822, end: 20110822
  12. NEUPOGEN [Suspect]
     Indication: DIFFUSE LARGE B-CELL LYMPHOMA
     Dosage: CYCLE 2
     Route: 042
     Dates: start: 20110905, end: 20110905

REACTIONS (4)
  - PYREXIA [None]
  - KLEBSIELLA INFECTION [None]
  - DIABETES MELLITUS [None]
  - DEEP VEIN THROMBOSIS [None]
